FAERS Safety Report 5704722-1 (Version None)
Quarter: 2008Q2

REPORT INFORMATION
  Report Type: 
  Country: None (occurrence: None)
  Receive Date: 20080414
  Receipt Date: 20080404
  Transmission Date: 20081010
  Serious: Yes (Hospitalization)
  Sender: FDA-Public Use
  Company Number: US-KINGPHARMUSA00001-K200800396

PATIENT

DRUGS (7)
  1. THROMBIN NOS [Suspect]
     Dosage: UNK, SINGLE
     Dates: start: 20071201, end: 20071201
  2. PLAVIX [Concomitant]
     Indication: COAGULOPATHY
     Dates: start: 20070301
  3. LANTUS [Concomitant]
     Indication: DIABETES MELLITUS
  4. HUMALOG [Concomitant]
     Indication: DIABETES MELLITUS
  5. LIPITOR [Concomitant]
     Indication: BLOOD CHOLESTEROL INCREASED
  6. ENALAPRIL MALEATE [Concomitant]
  7. ASPIRIN [Concomitant]

REACTIONS (5)
  - BURNING SENSATION [None]
  - ECCHYMOSIS [None]
  - INJECTION SITE NODULE [None]
  - PAIN IN EXTREMITY [None]
  - WRONG DRUG ADMINISTERED [None]
